FAERS Safety Report 24592273 (Version 1)
Quarter: 2024Q4

REPORT INFORMATION
  Report Type: Spontaneous
  Country: US (occurrence: US)
  Receive Date: 20241108
  Receipt Date: 20241108
  Transmission Date: 20250115
  Serious: No
  Sender: MERCK
  Company Number: US-009507513-2410USA009693

PATIENT
  Age: 57 Year
  Sex: Male

DRUGS (11)
  1. KEYTRUDA [Suspect]
     Active Substance: PEMBROLIZUMAB
     Indication: Renal cell carcinoma
     Dosage: UNK UNK, Q3W
     Route: 042
     Dates: start: 20240927, end: 20241018
  2. OZEMPIC [Concomitant]
     Active Substance: SEMAGLUTIDE
  3. METFORMIN [Concomitant]
     Active Substance: METFORMIN HYDROCHLORIDE
  4. CLOPIDOGREL [Concomitant]
     Active Substance: CLOPIDOGREL BISULFATE
  5. ATORVASTATIN [Concomitant]
     Active Substance: ATORVASTATIN
  6. FUROSEMIDE [Concomitant]
     Active Substance: FUROSEMIDE
  7. AMLODIPINE [Concomitant]
     Active Substance: AMLODIPINE BESYLATE
  8. DOXEPIN [Concomitant]
     Active Substance: DOXEPIN
  9. METOPROLOL [Concomitant]
     Active Substance: METOPROLOL
  10. TRESIBA [Concomitant]
     Active Substance: INSULIN DEGLUDEC
  11. HUMALOG [Concomitant]
     Active Substance: INSULIN LISPRO

REACTIONS (2)
  - Back pain [Not Recovered/Not Resolved]
  - Back pain [Not Recovered/Not Resolved]

NARRATIVE: CASE EVENT DATE: 20240927
